FAERS Safety Report 6425094-3 (Version None)
Quarter: 2009Q4

REPORT INFORMATION
  Report Type: 
  Country: None (occurrence: None)
  Receive Date: 20091103
  Receipt Date: 20091022
  Transmission Date: 20100525
  Serious: Yes (Hospitalization, Disabling)
  Sender: FDA-Public Use
  Company Number: NO-PFIZER INC-2009286930

PATIENT
  Age: 33 Year
  Sex: Female

DRUGS (4)
  1. CHAMPIX [Suspect]
     Indication: SMOKING CESSATION THERAPY
     Dosage: UNK
     Route: 048
     Dates: start: 20090101, end: 20090317
  2. REDUCTIL [Suspect]
     Indication: OVERWEIGHT
     Route: 048
     Dates: start: 20090113, end: 20090317
  3. ARCOXIA [Concomitant]
     Indication: BACK PAIN
     Dosage: 90 MG, 1X/DAY
     Route: 048
     Dates: start: 20080624, end: 20090301
  4. MOBIC [Concomitant]
     Indication: BACK PAIN
     Dosage: 15 MG, 1X/DAY
     Route: 048
     Dates: start: 20080113, end: 20090301

REACTIONS (1)
  - HYPERTHYROIDISM [None]
